FAERS Safety Report 11814354 (Version 1)
Quarter: 2015Q4

REPORT INFORMATION
  Report Type: Spontaneous
  Country: BR (occurrence: BR)
  Receive Date: 20151209
  Receipt Date: 20151209
  Transmission Date: 20160305
  Serious: Yes (Other)
  Sender: FDA-Public Use
  Company Number: BR-JNJFOC-20151204477

PATIENT
  Sex: Female

DRUGS (1)
  1. REMICADE [Suspect]
     Active Substance: INFLIXIMAB
     Indication: PSORIATIC ARTHROPATHY
     Route: 042
     Dates: start: 2011

REACTIONS (4)
  - Rectal haemorrhage [Recovering/Resolving]
  - Swelling [Recovering/Resolving]
  - Pain [Recovering/Resolving]
  - Arthritis [Recovering/Resolving]
